FAERS Safety Report 20680417 (Version 2)
Quarter: 2022Q3

REPORT INFORMATION
  Report Type: Report from Study
  Country: US (occurrence: US)
  Receive Date: 20220406
  Receipt Date: 20220725
  Transmission Date: 20221026
  Serious: Yes (Other)
  Sender: FDA-Public Use
  Company Number: US-BRISTOL-MYERS SQUIBB COMPANY-2022-014104

PATIENT
  Age: 81 Year
  Sex: Female
  Weight: 61.235 kg

DRUGS (1)
  1. REVLIMID [Suspect]
     Active Substance: LENALIDOMIDE
     Indication: Plasma cell myeloma
     Dosage: EXPIRY DATE- 30 APR 2024
     Route: 048
     Dates: start: 202104

REACTIONS (2)
  - Rash [Unknown]
  - Oral infection [Unknown]

NARRATIVE: CASE EVENT DATE: 20220223
